FAERS Safety Report 6436032-1 (Version None)
Quarter: 2009Q4

REPORT INFORMATION
  Report Type: 
  Country: None (occurrence: None)
  Receive Date: 20091111
  Receipt Date: 20091103
  Transmission Date: 20100525
  Serious: Yes (Other)
  Sender: FDA-Public Use
  Company Number: BE-ABBOTT-09P-013-0606315-00

PATIENT
  Sex: Male

DRUGS (1)
  1. LUCRIN DEPOT 3.75 MG [Suspect]
     Indication: PROSTATE CANCER
     Dates: start: 20090625

REACTIONS (1)
  - DIABETES MELLITUS [None]
